FAERS Safety Report 23314794 (Version 2)
Quarter: 2024Q1

REPORT INFORMATION
  Report Type: Spontaneous
  Country: US (occurrence: None)
  Receive Date: 20231219
  Receipt Date: 20240117
  Transmission Date: 20240410
  Serious: No
  Sender: FDA-Public Use
  Company Number: US-FARMAPROD-202312-3635

PATIENT
  Age: 2 Year
  Sex: Female

DRUGS (2)
  1. OXERVATE [Suspect]
     Active Substance: CENEGERMIN-BKBJ
     Indication: Neurotrophic keratopathy
     Route: 047
     Dates: start: 20231128
  2. MAXITROL [Concomitant]
     Active Substance: DEXAMETHASONE\NEOMYCIN SULFATE\POLYMYXIN B SULFATE
     Dosage: TO ALLOW THE HEALING OF THE EYELIDS POST TARSORRHAPHY.
     Route: 061
     Dates: start: 20231206, end: 20231220

REACTIONS (1)
  - Blepharorrhaphy [Recovered/Resolved]

NARRATIVE: CASE EVENT DATE: 20231206
